FAERS Safety Report 4444092-2 (Version None)
Quarter: 2004Q3

REPORT INFORMATION
  Report Type: 
  Country: None (occurrence: None)
  Receive Date: 20040729
  Receipt Date: 20031119
  Transmission Date: 20050211
  Serious: Yes (Hospitalization)
  Sender: FDA-Public Use
  Company Number: US-JNJFOC-20030805444

PATIENT
  Age: 51 Year
  Sex: Female
  Weight: 52.1637 kg

DRUGS (11)
  1. RISPERDAL [Suspect]
     Indication: AGITATION
     Dosage: 0.5 MG, 1 IN 1 DAY; ORAL
     Route: 048
     Dates: start: 20030101, end: 20030810
  2. RISPERDAL [Suspect]
     Indication: DEMENTIA
     Dosage: 0.5 MG, 1 IN 1 DAY; ORAL
     Route: 048
     Dates: start: 20030101, end: 20030810
  3. MIACALAIN NASAL SPRAY (CALCITONIN, SALMON) [Concomitant]
  4. TYLENOL (ACETAMINOPHEN/CODEINE) [Concomitant]
  5. ZOLOFT [Concomitant]
  6. OYST CAL-D (CALCIUM CARBONATE) [Concomitant]
  7. PEPCID [Concomitant]
  8. SENNA [Concomitant]
  9. REMINYL [Concomitant]
  10. COLACE (DUCUSATE SODIUM) [Concomitant]
  11. SEPTRA DS [Concomitant]

REACTIONS (2)
  - CONVULSION [None]
  - EXTRAPYRAMIDAL DISORDER [None]
